FAERS Safety Report 19177800 (Version 1)
Quarter: 2021Q2

REPORT INFORMATION
  Report Type: Spontaneous
  Country: FR (occurrence: FR)
  Receive Date: 20210426
  Receipt Date: 20210426
  Transmission Date: 20210717
  Serious: Yes (Other)
  Sender: FDA-Public Use
  Company Number: FR-SAMSUNG BIOEPIS-SB-2021-09708

PATIENT
  Age: 3 Year
  Sex: Female
  Weight: 15.6 kg

DRUGS (21)
  1. PREDNISOLONE. [Suspect]
     Active Substance: PREDNISOLONE
     Indication: STILL^S DISEASE
     Route: 065
  2. MYCOPHENOLATE MOFETIL. [Concomitant]
     Active Substance: MYCOPHENOLATE MOFETIL
     Indication: PROPHYLAXIS AGAINST GRAFT VERSUS HOST DISEASE
     Dosage: UNKNOWN
     Route: 065
  3. ADALIMUMAB [Suspect]
     Active Substance: ADALIMUMAB
     Indication: STILL^S DISEASE
     Dosage: UNKNOWN
     Route: 065
  4. ORACILLIN [PHENOXYMETHYLPENICILLIN POTASSIUM] [Suspect]
     Active Substance: PENICILLIN V POTASSIUM
     Indication: PROPHYLAXIS
     Dosage: UNKNOWN
     Route: 065
  5. PREDNISOLONE. [Suspect]
     Active Substance: PREDNISOLONE
     Dosage: DOSE WAS TAPERED
     Route: 065
  6. INDOMETHACIN. [Suspect]
     Active Substance: INDOMETHACIN
     Indication: STILL^S DISEASE
     Route: 065
  7. ANAKINRA [Concomitant]
     Active Substance: ANAKINRA
     Indication: STILL^S DISEASE
     Dosage: UNKNOWN
     Route: 065
  8. FLUDARABINE [Concomitant]
     Active Substance: FLUDARABINE PHOSPHATE
     Indication: BONE MARROW CONDITIONING REGIMEN
     Route: 065
  9. CYCLOSPORIN A [Concomitant]
     Active Substance: CYCLOSPORINE
     Indication: PROPHYLAXIS AGAINST GRAFT VERSUS HOST DISEASE
     Dosage: UNKNOWN
     Route: 065
  10. ALEMTUZUMAB [Concomitant]
     Active Substance: ALEMTUZUMAB
     Indication: BONE MARROW CONDITIONING REGIMEN
     Route: 065
  11. CYCLOPHOSPHAMIDE. [Concomitant]
     Active Substance: CYCLOPHOSPHAMIDE
     Indication: PROPHYLAXIS AGAINST GRAFT VERSUS HOST DISEASE
     Dosage: AT DAY 3 AND 4
     Route: 065
  12. METHOTREXATE. [Suspect]
     Active Substance: METHOTREXATE
     Indication: STILL^S DISEASE
     Route: 065
  13. BUSULFAN. [Concomitant]
     Active Substance: BUSULFAN
     Indication: BONE MARROW CONDITIONING REGIMEN
     Dosage: UNKNOWN
     Route: 065
  14. INFLIXIMAB [Suspect]
     Active Substance: INFLIXIMAB
     Indication: STILL^S DISEASE
     Route: 065
  15. METHYLPREDNISOLONE. [Suspect]
     Active Substance: METHYLPREDNISOLONE
     Indication: STILL^S DISEASE
     Dosage: UNKNOWN
     Route: 065
  16. TOCILIZUMAB. [Concomitant]
     Active Substance: TOCILIZUMAB
     Indication: STILL^S DISEASE
     Dosage: UNKNOWN
     Route: 065
  17. CANAKINUMAB. [Concomitant]
     Active Substance: CANAKINUMAB
     Indication: STILL^S DISEASE
     Dosage: UNKNOWN
     Route: 065
  18. INFLIXIMAB [Suspect]
     Active Substance: INFLIXIMAB
     Indication: GRAFT VERSUS HOST DISEASE IN GASTROINTESTINAL TRACT
  19. PREDNISOLONE. [Suspect]
     Active Substance: PREDNISOLONE
     Dosage: UNKNOWN TAPERING DOSE
     Route: 065
  20. THALIDOMIDE [Suspect]
     Active Substance: THALIDOMIDE
     Indication: STILL^S DISEASE
     Route: 065
  21. RITUXIMAB. [Concomitant]
     Active Substance: RITUXIMAB
     Indication: BONE MARROW CONDITIONING REGIMEN
     Route: 065

REACTIONS (26)
  - Graft versus host disease in gastrointestinal tract [Recovered/Resolved]
  - Obliterative bronchiolitis [Unknown]
  - Hypothyroidism [Unknown]
  - Osteopenia [Unknown]
  - Vitiligo [Unknown]
  - Ill-defined disorder [Unknown]
  - Toxicity to various agents [Unknown]
  - Growth retardation [Recovering/Resolving]
  - Autoimmune thyroiditis [Unknown]
  - Secondary adrenocortical insufficiency [Unknown]
  - Herpes zoster [Unknown]
  - Joint effusion [Recovered/Resolved]
  - Actinomycotic sepsis [Unknown]
  - Clostridium difficile colitis [Recovered/Resolved]
  - Aplasia [Recovered/Resolved]
  - Still^s disease [Recovering/Resolving]
  - Drug resistance [Unknown]
  - Hepatic cytolysis [Unknown]
  - Immune thrombocytopenia [Recovering/Resolving]
  - Pulmonary function test abnormal [Recovered/Resolved]
  - Impaired quality of life [Unknown]
  - Focal nodular hyperplasia [Unknown]
  - Graft versus host disease in skin [Recovering/Resolving]
  - Cellulitis staphylococcal [Unknown]
  - Hypertension [Unknown]
  - Off label use [Unknown]
